FAERS Safety Report 6491065-4 (Version None)
Quarter: 2009Q4

REPORT INFORMATION
  Report Type: 
  Country: None (occurrence: None)
  Receive Date: 20091211
  Receipt Date: 20091201
  Transmission Date: 20100525
  Serious: Yes (Death, Hospitalization)
  Sender: FDA-Public Use
  Company Number: US-ROCHE-657306

PATIENT
  Sex: Female
  Weight: 48 kg

DRUGS (7)
  1. MYCOPHENOLATE MOFETIL [Suspect]
     Route: 048
     Dates: start: 20071002, end: 20090910
  2. COUMADIN [Suspect]
     Indication: MITRAL VALVE REPLACEMENT
     Dosage: AT BED TIME
     Route: 048
     Dates: start: 20000101, end: 20090910
  3. TACROLIMUS [Concomitant]
     Indication: IMMUNOSUPPRESSION
     Dosage: DOSE REPORTED AS: 2.5-2. FREQUENCY: AM AND PM
     Route: 048
     Dates: start: 20071002, end: 20090910
  4. FLUCONAZOLE [Concomitant]
     Dosage: OF DAY
     Route: 048
     Dates: start: 20071003, end: 20090910
  5. PHENYTOIN [Concomitant]
     Route: 048
     Dates: end: 20090910
  6. LISINOPRIL [Concomitant]
     Dates: start: 20090619, end: 20090910
  7. SERTRALINE HCL [Concomitant]
     Dates: end: 20090910

REACTIONS (9)
  - ABDOMINAL PAIN LOWER [None]
  - APHASIA [None]
  - CARDIO-RESPIRATORY ARREST [None]
  - DEPRESSED LEVEL OF CONSCIOUSNESS [None]
  - HAEMORRHAGE INTRACRANIAL [None]
  - HEMIPARESIS [None]
  - INTERNATIONAL NORMALISED RATIO INCREASED [None]
  - INTESTINAL OBSTRUCTION [None]
  - THALAMUS HAEMORRHAGE [None]
